FAERS Safety Report 20229420 (Version 1)
Quarter: 2021Q4

REPORT INFORMATION
  Report Type: Spontaneous
  Country: BR (occurrence: BR)
  Receive Date: 20211225
  Receipt Date: 20211225
  Transmission Date: 20220303
  Serious: Yes (Hospitalization)
  Sender: FDA-Public Use
  Company Number: BR-NOVARTISPH-NVSC2021BR292286

PATIENT
  Age: 72 Year
  Sex: Male
  Weight: 73 kg

DRUGS (5)
  1. LOSARTAN [Suspect]
     Active Substance: LOSARTAN
     Indication: Product used for unknown indication
     Dosage: UNK
     Route: 065
     Dates: start: 202004, end: 202106
  2. CLOPIDOGREL [Suspect]
     Active Substance: CLOPIDOGREL BISULFATE
     Indication: Product used for unknown indication
     Dosage: 1 DOSAGE FORM, QD
     Route: 048
     Dates: start: 202004
  3. SIMVASTATIN [Suspect]
     Active Substance: SIMVASTATIN
     Indication: Blood cholesterol
     Dosage: 1 DOSAGE FORM, QD (AT NIGHT)
     Route: 048
     Dates: start: 202004
  4. ASPIRIN [Concomitant]
     Active Substance: ASPIRIN
     Indication: Dialysis
     Dosage: 1 DOSAGE FORM, QD (AFTER LUNCH)
     Route: 048
     Dates: start: 202004
  5. BISOPROLOL FUMARATE [Concomitant]
     Active Substance: BISOPROLOL FUMARATE
     Indication: Cardiac disorder
     Dosage: 1 DOSAGE FORM, QD (AT NIGHT)
     Route: 048
     Dates: start: 202004

REACTIONS (2)
  - Infarction [Unknown]
  - Blood pressure increased [Unknown]

NARRATIVE: CASE EVENT DATE: 20200401
